FAERS Safety Report 6518651-7 (Version None)
Quarter: 2009Q4

REPORT INFORMATION
  Report Type: 
  Country: None (occurrence: None)
  Receive Date: 20091228
  Receipt Date: 20091217
  Transmission Date: 20100525
  Serious: Yes (Death)
  Sender: FDA-Public Use
  Company Number: DK-ROCHE-670920

PATIENT
  Sex: Female

DRUGS (15)
  1. TAMIFLU [Suspect]
     Route: 048
     Dates: start: 20091024, end: 20091111
  2. RELENZA [Suspect]
     Route: 065
  3. CASPOFUNGIN ACETATE [Concomitant]
     Dosage: FREQUENCY: QD.
     Route: 042
     Dates: start: 20091107, end: 20091107
  4. CASPOFUNGIN ACETATE [Concomitant]
     Route: 042
     Dates: start: 20091108, end: 20091108
  5. CASPOFUNGIN ACETATE [Concomitant]
     Route: 042
     Dates: start: 20091109, end: 20091109
  6. MERONEM [Concomitant]
     Dosage: FREQUENCY: TID.
     Route: 042
     Dates: start: 20091101, end: 20091108
  7. METRONIDAZOLE [Concomitant]
     Dosage: FREQUENCY: TID
     Route: 042
     Dates: start: 20091102, end: 20091107
  8. ERYTHROMYCIN [Concomitant]
     Dosage: FREQUENCY:TID
     Route: 042
     Dates: start: 20091102, end: 20091107
  9. SOLU-MEDROL [Concomitant]
     Dosage: FREQUENCY: BID
     Dates: start: 20091105
  10. CLARITHROMYCIN [Concomitant]
     Dosage: FREQUENCY: BID
     Route: 042
     Dates: start: 20091104, end: 20091107
  11. ACETAMINOPHEN [Concomitant]
     Dosage: FREQUENCY: QID
     Route: 048
     Dates: end: 20091107
  12. PRIMPERAN TAB [Concomitant]
     Route: 042
     Dates: start: 20091101, end: 20091108
  13. DIFLUCAN [Concomitant]
     Dosage: FREQUENCY:QD
     Route: 042
     Dates: start: 20091102, end: 20091103
  14. ECANTIA [Concomitant]
     Route: 042
     Dates: start: 20091104, end: 20091104
  15. ECANTIA [Concomitant]
     Route: 042
     Dates: start: 20091105, end: 20091107

REACTIONS (1)
  - HEPATIC FAILURE [None]
